FAERS Safety Report 10548492 (Version 1)
Quarter: 2014Q4

REPORT INFORMATION
  Report Type: Spontaneous
  Country: US (occurrence: None)
  Receive Date: 20141027
  Receipt Date: 20141027
  Transmission Date: 20150529
  Serious: Yes (Other)
  Sender: FDA-Public Use
  Company Number: None

PATIENT
  Age: 47 Year
  Sex: Female

DRUGS (10)
  1. PROCHLORPERAZINE. [Concomitant]
     Active Substance: PROCHLORPERAZINE
  2. GABAPENIN [Concomitant]
  3. LORAZEPAM. [Concomitant]
     Active Substance: LORAZEPAM
  4. METHADONE [Concomitant]
     Active Substance: METHADONE HYDROCHLORIDE
  5. SUTENT [Suspect]
     Active Substance: SUNITINIB MALATE
     Indication: NEUROENDOCRINE CARCINOMA
     Route: 048
     Dates: start: 20140919, end: 20141024
  6. DRONABINOL. [Concomitant]
     Active Substance: DRONABINOL
  7. DIPHENOXYLATE [Concomitant]
     Active Substance: DIPHENOXYLATE
  8. MAG-OXIDE [Concomitant]
  9. SUTENT [Suspect]
     Active Substance: SUNITINIB MALATE
     Indication: NEUROENDOCRINE CARCINOMA
     Route: 048
     Dates: start: 20140919, end: 20141024
  10. VENLAFAXINE [Concomitant]
     Active Substance: VENLAFAXINE HYDROCHLORIDE

REACTIONS (2)
  - Neoplasm [None]
  - Drug ineffective [None]

NARRATIVE: CASE EVENT DATE: 20141024
